FAERS Safety Report 5581352-6 (Version None)
Quarter: 2008Q1

REPORT INFORMATION
  Report Type: 
  Country: None (occurrence: None)
  Receive Date: 20080104
  Receipt Date: 20071221
  Transmission Date: 20080703
  Serious: No
  Sender: FDA-Public Use
  Company Number: US-BAYER-200717110NA

PATIENT
  Age: 46 Year
  Sex: Female
  Weight: 73 kg

DRUGS (3)
  1. YAZ [Suspect]
     Indication: DYSMENORRHOEA
     Route: 048
     Dates: start: 20071001
  2. WELLBUTRIN XL [Concomitant]
     Route: 048
  3. MOTRIN [Concomitant]

REACTIONS (2)
  - DRUG DOSE OMISSION [None]
  - METRORRHAGIA [None]
